FAERS Safety Report 4746834-5 (Version None)
Quarter: 2005Q3

REPORT INFORMATION
  Report Type: 
  Country: None (occurrence: None)
  Receive Date: 20050815
  Receipt Date: 20050801
  Transmission Date: 20060218
  Serious: Yes (Hospitalization)
  Sender: FDA-Public Use
  Company Number: 2005BI012177

PATIENT
  Age: 47 Year
  Sex: Male
  Weight: 108.8633 kg

DRUGS (1)
  1. AVONEX [Suspect]
     Indication: MULTIPLE SCLEROSIS
     Dosage: 30 UG; QW; IM
     Route: 030
     Dates: start: 20040710

REACTIONS (3)
  - HEART RATE INCREASED [None]
  - PULMONARY THROMBOSIS [None]
  - THROMBOSIS [None]
